FAERS Safety Report 8889397 (Version 1)
Quarter: 2012Q4

REPORT INFORMATION
  Report Type: Spontaneous
  Country: US (occurrence: None)
  Receive Date: 20121102
  Receipt Date: 20121102
  Transmission Date: 20130627
  Serious: Yes (Other)
  Sender: FDA-Public Use
  Company Number: None

PATIENT
  Age: 71 Year
  Sex: Female
  Weight: 80.29 kg

DRUGS (1)
  1. ARTHRITIS [Suspect]
     Indication: ARTHRITIS
     Dosage: Rub in generous 

3 or 4 times daily
     Route: 061
     Dates: start: 20121025, end: 20121028

REACTIONS (2)
  - Application site burn [None]
  - Application site exfoliation [None]
